FAERS Safety Report 13775649 (Version 1)
Quarter: 2017Q3

REPORT INFORMATION
  Report Type: Spontaneous
  Country: US (occurrence: US)
  Receive Date: 20170720
  Receipt Date: 20170720
  Transmission Date: 20171127
  Serious: No
  Sender: FDA-Public Use
  Company Number: US-BAUSCH-BL-2016-020414

PATIENT
  Sex: Female

DRUGS (5)
  1. PHERMA GENERIC FOR THE LOTEMAX [Concomitant]
     Route: 047
  2. PROLENSA [Suspect]
     Active Substance: BROMFENAC SODIUM
     Indication: PREOPERATIVE CARE
     Route: 047
     Dates: start: 20160822
  3. PHERMA GENERIC FOR THE LOTEMAX [Concomitant]
     Indication: PREOPERATIVE CARE
     Route: 047
  4. PHERMA GENERIC FOR THE LOTEMAX [Concomitant]
     Route: 047
  5. BESIVANCE [Suspect]
     Active Substance: BESIFLOXACIN
     Indication: PREOPERATIVE CARE
     Route: 047
     Dates: start: 20160822

REACTIONS (1)
  - Ocular hyperaemia [Not Recovered/Not Resolved]

NARRATIVE: CASE EVENT DATE: 20160823
